FAERS Safety Report 5087370-9 (Version None)
Quarter: 2006Q3

REPORT INFORMATION
  Report Type: 
  Country: None (occurrence: None)
  Receive Date: 20060822
  Receipt Date: 20060822
  Transmission Date: 20061208
  Serious: Yes (Hospitalization)
  Sender: FDA-Public Use
  Company Number: None

PATIENT
  Age: 61 Year
  Sex: Male
  Weight: 84.369 kg

DRUGS (16)
  1. DOXAZOSIN MESYLATE [Suspect]
     Indication: MIXED INCONTINENCE
     Dosage: ONE TAB PO TWICE A DAY
     Route: 048
     Dates: start: 20060317, end: 20060626
  2. DOXAZOSIN MESYLATE [Suspect]
     Indication: PROSTATIC DISORDER
     Dosage: ONE TAB PO TWICE A DAY
     Route: 048
     Dates: start: 20060317, end: 20060626
  3. ALBUTEROL [Concomitant]
  4. ALBUTEROL SULFATE AND IPRATROPIUM BROMIDE [Concomitant]
  5. ALBUTEROL SULFATE [Concomitant]
  6. DIVALPROEX [Concomitant]
  7. DEXTRAN-70/CELLULOSE [Concomitant]
  8. FLUOCINONIDE [Concomitant]
  9. FLUTICASONE PROPIONATE [Concomitant]
  10. HYDROXIZINE [Concomitant]
  11. LORATADINE [Concomitant]
  12. MOMETASONE [Concomitant]
  13. OMEPRAZOLE [Concomitant]
  14. POTASSIUM CHLORIDE [Concomitant]
  15. BENZONANATE [Concomitant]
  16. TRIAMTERENE AND HYDROCHLOROTHIAZIDE [Concomitant]

REACTIONS (3)
  - BRADYCARDIA [None]
  - DIZZINESS POSTURAL [None]
  - SYNCOPE [None]
